FAERS Safety Report 8215603-6 (Version None)
Quarter: 2012Q1

REPORT INFORMATION
  Report Type: 
  Country: None (occurrence: None)
  Receive Date: 20120316
  Receipt Date: 20120312
  Transmission Date: 20120608
  Serious: Yes (Other)
  Sender: FDA-Public Use
  Company Number: TW-ROCHE-1048086

PATIENT

DRUGS (1)
  1. TAMIFLU [Suspect]
     Indication: INFLUENZA
     Route: 048

REACTIONS (5)
  - AGITATION [None]
  - TOURETTE'S DISORDER [None]
  - CEREBRAL DISORDER [None]
  - CEREBROVASCULAR DISORDER [None]
  - ABNORMAL BEHAVIOUR [None]
